FAERS Safety Report 12103683 (Version 2)
Quarter: 2016Q2

REPORT INFORMATION
  Report Type: Spontaneous
  Country: US (occurrence: US)
  Receive Date: 20160223
  Receipt Date: 20160615
  Transmission Date: 20160815
  Serious: Yes (Other)
  Sender: FDA-Public Use
  Company Number: US-HOSPIRA-3175187

PATIENT
  Age: 64 Year
  Sex: Male
  Weight: 57 kg

DRUGS (6)
  1. ELOXATIN [Suspect]
     Active Substance: OXALIPLATIN
     Indication: ADENOCARCINOMA OF COLON
     Dosage: 85 MG/M2, OVER 2 HOURS ON DAY 1
     Route: 042
     Dates: start: 20150420
  2. ELOXATIN [Suspect]
     Active Substance: OXALIPLATIN
     Dosage: 65 MG/M2, ON DAY 1
     Route: 042
     Dates: start: 20150922, end: 20150922
  3. 5-FLUOROURACIL /00098801/ [Suspect]
     Active Substance: FLUOROURACIL
     Dosage: 2400 MG/M2, OVER 46-48 HOURS ON DAY 1
     Route: 042
     Dates: start: 20150922, end: 20150924
  4. CELEBREX [Suspect]
     Active Substance: CELECOXIB
     Indication: ADENOCARCINOMA OF COLON
     Dosage: 400 MG, STARTING ON DAY 1 OF CYCLE 2 OF FOLFOX CONTINUED TO 3 YEARS, FREQ: 1 DAY; INTERVAL: 1
     Route: 048
     Dates: start: 20150505, end: 20151102
  5. 5-FLUOROURACIL /00098801/ [Suspect]
     Active Substance: FLUOROURACIL
     Indication: ADENOCARCINOMA OF COLON
     Dosage: 400 MG/M2, ON DAY 1
     Route: 040
     Dates: start: 20150922, end: 20150922
  6. CALCIUM FOLINATE [Suspect]
     Active Substance: LEUCOVORIN CALCIUM
     Indication: ADENOCARCINOMA OF COLON
     Dosage: 400 MG/M2, OVER 2 HOURS ON DAY 1
     Route: 042
     Dates: start: 20150922, end: 20150922

REACTIONS (2)
  - Neuropathy peripheral [None]
  - Pulmonary embolism [Unknown]

NARRATIVE: CASE EVENT DATE: 20151102
